FAERS Safety Report 7473103-5 (Version None)
Quarter: 2011Q2

REPORT INFORMATION
  Report Type: 
  Country: None (occurrence: None)
  Receive Date: 20110503
  Receipt Date: 20110425
  Transmission Date: 20111010
  Serious: Yes (Life-Threatening, Hospitalization, Other)
  Sender: FDA-Public Use
  Company Number: 2009AC000426

PATIENT
  Age: 77 Year
  Sex: Female
  Weight: 56.246 kg

DRUGS (25)
  1. DIGOXIN [Suspect]
     Indication: PRODUCT USED FOR UNKNOWN INDICATION
     Dosage: 0.150 MG, QD, PO
     Route: 048
     Dates: start: 19970315, end: 20080505
  2. DIGOXIN [Suspect]
     Indication: HEART RATE INCREASED
     Dosage: PO
     Route: 048
     Dates: end: 19970315
  3. OMEPRAZOLE [Concomitant]
  4. NAPROXEN (ALEVE) [Concomitant]
  5. FUROSEMIDE [Concomitant]
  6. ACTONEL [Concomitant]
  7. VITAMIN D [Concomitant]
  8. ALENDRONATE SODIUM [Concomitant]
  9. DIGOXIN [Suspect]
     Indication: PRODUCT USED FOR UNKNOWN INDICATION
     Dosage: 0.125 MG, QOD, PO
     Route: 048
     Dates: start: 20080527, end: 20080601
  10. NAPROSYN [Concomitant]
  11. PEPCID [Concomitant]
  12. DIGOXIN [Suspect]
     Indication: PRODUCT USED FOR UNKNOWN INDICATION
     Dosage: 0.125 MG, QD, PO
     Route: 048
     Dates: start: 20080630, end: 20100501
  13. FOSAMAX [Concomitant]
  14. DARVOCET-N 50 [Concomitant]
  15. DOCUSATE SENNA [Concomitant]
  16. ASPIRIN [Concomitant]
  17. LISINOPRIL [Concomitant]
  18. CLARITHROMYCIN [Concomitant]
  19. CALCIUM CARBONATE [Concomitant]
  20. OSCAL [Concomitant]
  21. MOM [Concomitant]
  22. ACETAMINOPHEN [Concomitant]
  23. WARFARIN SODIUM [Concomitant]
  24. FERROUS SULFATE TAB [Concomitant]
  25. TRAMADOL HCL [Concomitant]

REACTIONS (67)
  - CEREBRAL ATROPHY [None]
  - PERIPHERAL COLDNESS [None]
  - BLOOD ALKALINE PHOSPHATASE INCREASED [None]
  - PROTEIN URINE PRESENT [None]
  - DECREASED APPETITE [None]
  - VOMITING [None]
  - BLOOD CALCIUM DECREASED [None]
  - SINUS TACHYCARDIA [None]
  - DIVERTICULUM [None]
  - SLEEP DISORDER [None]
  - NAUSEA [None]
  - AORTIC STENOSIS [None]
  - MITRAL VALVE INCOMPETENCE [None]
  - RADIUS FRACTURE [None]
  - ELECTROCARDIOGRAM QRS COMPLEX ABNORMAL [None]
  - CHRONIC OBSTRUCTIVE PULMONARY DISEASE [None]
  - CONGENITAL NEUROPATHY [None]
  - INGUINAL HERNIA [None]
  - PERONEAL NERVE PALSY [None]
  - CEREBRAL VENTRICLE DILATATION [None]
  - MALAISE [None]
  - ANAEMIA [None]
  - BLOOD UREA INCREASED [None]
  - PRODUCT QUALITY ISSUE [None]
  - RIGHT ATRIAL DILATATION [None]
  - VENOUS INSUFFICIENCY [None]
  - BLOOD URINE PRESENT [None]
  - DIARRHOEA [None]
  - BLOOD SODIUM DECREASED [None]
  - PULMONARY FIBROSIS [None]
  - BACK PAIN [None]
  - OEDEMA PERIPHERAL [None]
  - CONDITION AGGRAVATED [None]
  - ELECTROCARDIOGRAM ST-T CHANGE [None]
  - SUPRAVENTRICULAR TACHYCARDIA [None]
  - ATRIAL FIBRILLATION [None]
  - HEART RATE DECREASED [None]
  - CARDIOMEGALY [None]
  - SCOLIOSIS [None]
  - PUBIS FRACTURE [None]
  - DEEP VEIN THROMBOSIS [None]
  - DILATATION VENTRICULAR [None]
  - FEELING HOT [None]
  - GASTRIC ULCER HAEMORRHAGE [None]
  - COMMINUTED FRACTURE [None]
  - BUNDLE BRANCH BLOCK RIGHT [None]
  - BLOOD CREATININE INCREASED [None]
  - NEPHROLITHIASIS [None]
  - MALNUTRITION [None]
  - FEMORAL NECK FRACTURE [None]
  - DYSPHAGIA [None]
  - CHOKING [None]
  - TRICUSPID VALVE INCOMPETENCE [None]
  - ECONOMIC PROBLEM [None]
  - TOXICITY TO VARIOUS AGENTS [None]
  - ASTHENIA [None]
  - PAIN [None]
  - MYOCARDIAL ISCHAEMIA [None]
  - FALL [None]
  - FRACTURE DISPLACEMENT [None]
  - CEREBRAL ISCHAEMIA [None]
  - WALKING AID USER [None]
  - HYPOALBUMINAEMIA [None]
  - DIASTOLIC DYSFUNCTION [None]
  - PULMONARY HYPERTENSION [None]
  - WEIGHT DECREASED [None]
  - MUSCULAR WEAKNESS [None]
